FAERS Safety Report 9291236 (Version 6)
Quarter: 2015Q2

REPORT INFORMATION
  Report Type: Spontaneous
  Country: US (occurrence: US)
  Receive Date: 20130515
  Receipt Date: 20150512
  Transmission Date: 20150821
  Serious: Yes (Disabling)
  Sender: FDA-Public Use
  Company Number: US-009507513-1305USA008435

PATIENT
  Sex: Male

DRUGS (4)
  1. PROPECIA [Suspect]
     Active Substance: FINASTERIDE
     Indication: ANDROGENETIC ALOPECIA
     Dosage: 1 MG, QD
     Route: 048
     Dates: start: 20051202, end: 20080917
  2. PENTASA [Concomitant]
     Active Substance: MESALAMINE
     Indication: CROHN^S DISEASE
     Dosage: 1500 MG, BID
     Route: 048
     Dates: start: 2001
  3. NEXIUM [Concomitant]
     Active Substance: ESOMEPRAZOLE MAGNESIUM
     Indication: GASTROOESOPHAGEAL REFLUX DISEASE
     Dosage: 40 MG, QD
     Route: 048
     Dates: start: 2001
  4. PROVENTIL [Concomitant]
     Active Substance: ALBUTEROL
     Indication: ASTHMA
     Dosage: UNK

REACTIONS (16)
  - Feeling abnormal [Recovering/Resolving]
  - Arthritis [Unknown]
  - Dizziness [Unknown]
  - Joint injury [Unknown]
  - Hypogonadism [Unknown]
  - Erectile dysfunction [Not Recovered/Not Resolved]
  - Blood testosterone decreased [Unknown]
  - Upper respiratory tract infection [Unknown]
  - Headache [Unknown]
  - Sexual dysfunction [Not Recovered/Not Resolved]
  - Seasonal allergy [Unknown]
  - Libido decreased [Unknown]
  - Anxiety [Unknown]
  - Rhinitis allergic [Unknown]
  - Haemorrhoids [Unknown]
  - Fatigue [Not Recovered/Not Resolved]

NARRATIVE: CASE EVENT DATE: 2006
